FAERS Safety Report 5822234-1 (Version None)
Quarter: 2008Q3

REPORT INFORMATION
  Report Type: 
  Country: None (occurrence: None)
  Receive Date: 20080725
  Receipt Date: 20080519
  Transmission Date: 20090109
  Serious: No
  Sender: FDA-Public Use
  Company Number: US-AMGEN-KDL281254

PATIENT
  Sex: Female
  Weight: 67.2 kg

DRUGS (1)
  1. PROCRIT [Suspect]
     Indication: MYELODYSPLASTIC SYNDROME
     Route: 058
     Dates: start: 20080519

REACTIONS (3)
  - BLOOD PRESSURE DECREASED [None]
  - FATIGUE [None]
  - HYPOKINESIA [None]
